FAERS Safety Report 9437004 (Version 3)
Quarter: 2013Q3

REPORT INFORMATION
  Report Type: Spontaneous
  Country: US (occurrence: US)
  Receive Date: 20130802
  Receipt Date: 20130923
  Transmission Date: 20140515
  Serious: Yes (Other)
  Sender: FDA-Public Use
  Company Number: US-PFIZER INC-2013224978

PATIENT
  Age: 67 Year
  Sex: Male
  Weight: 97.51 kg

DRUGS (3)
  1. LIPITOR [Suspect]
     Indication: BLOOD CHOLESTEROL INCREASED
     Dosage: 20 MG, 1X/DAY
     Route: 048
  2. LIPITOR [Suspect]
     Dosage: 10 MG, 1X/DAY
     Route: 048
  3. PLAVIX [Concomitant]
     Dosage: UNK

REACTIONS (2)
  - Insulin-requiring type 2 diabetes mellitus [Unknown]
  - Pain [Unknown]
